FAERS Safety Report 5762408-1 (Version None)
Quarter: 2008Q2

REPORT INFORMATION
  Report Type: 
  Country: None (occurrence: None)
  Receive Date: 20080609
  Receipt Date: 20080529
  Transmission Date: 20081010
  Serious: Yes (Hospitalization)
  Sender: FDA-Public Use
  Company Number: FR-JNJFOC-20080506253

PATIENT
  Age: 80 Year
  Sex: Male

DRUGS (8)
  1. DOXORUBICIN HCL [Suspect]
     Indication: KAPOSI'S SARCOMA
     Dosage: RECEIVED 5 CYCLES
     Route: 042
  2. ATARAX [Concomitant]
     Route: 048
  3. ASANTINE [Concomitant]
     Route: 048
  4. CERIS [Concomitant]
     Route: 048
  5. OXYCONTIN [Concomitant]
     Route: 048
  6. TRANDATE [Concomitant]
     Route: 048
  7. SERMION [Concomitant]
     Route: 048
  8. RIVOTRIL [Concomitant]
     Route: 065

REACTIONS (1)
  - DERMATITIS BULLOUS [None]
